FAERS Safety Report 5216456-0 (Version None)
Quarter: 2006Q4

REPORT INFORMATION
  Report Type: 
  Country: None (occurrence: None)
  Receive Date: 20061129
  Receipt Date: 20030303
  Transmission Date: 20070319
  Serious: No
  Sender: FDA-Public Use
  Company Number: 2003UW01343

PATIENT
  Age: 83 Year
  Sex: Female
  Weight: 50.3493 kg

DRUGS (1)
  1. FASLODEX [Suspect]
     Dosage: 250 MG  MONTH  IM
     Route: 030

REACTIONS (1)
  - DISEASE PROGRESSION [None]
